FAERS Safety Report 24091625 (Version 1)
Quarter: 2024Q3

REPORT INFORMATION
  Report Type: Spontaneous
  Country: US (occurrence: None)
  Receive Date: 20240713
  Receipt Date: 20240713
  Transmission Date: 20241017
  Serious: No
  Sender: Public
  Company Number: None

PATIENT
  Age: 65 Year
  Sex: Female

DRUGS (2)
  1. AMBRISENTAN [Suspect]
     Active Substance: AMBRISENTAN
     Indication: Pulmonary hypertension
     Dosage: 5MG QD ORAL
     Route: 048
     Dates: start: 20240614, end: 20240708
  2. VELETRI [Suspect]
     Active Substance: EPOPROSTENOL

REACTIONS (4)
  - Dyspnoea [None]
  - Diarrhoea [None]
  - Eyelid disorder [None]
  - Feeling abnormal [None]

NARRATIVE: CASE EVENT DATE: 20240708
